FAERS Safety Report 8722348 (Version 2)
Quarter: 2013Q4

REPORT INFORMATION
  Report Type: Spontaneous
  Country: US (occurrence: US)
  Receive Date: 20120814
  Receipt Date: 20131105
  Transmission Date: 20140711
  Serious: Yes (Hospitalization)
  Sender: FDA-Public Use
  Company Number: US-009507513-1208USA004200

PATIENT
  Age: 59 Year
  Sex: Male

DRUGS (1)
  1. VICTRELIS [Suspect]
     Dosage: UNK
     Route: 048
     Dates: start: 20120515, end: 20120706

REACTIONS (2)
  - Loss of consciousness [Recovered/Resolved]
  - Anaemia [Recovered/Resolved]
